FAERS Safety Report 7793258-2 (Version None)
Quarter: 2011Q4

REPORT INFORMATION
  Report Type: 
  Country: None (occurrence: None)
  Receive Date: 20111003
  Receipt Date: 20110915
  Transmission Date: 20120403
  Serious: Yes (Hospitalization)
  Sender: FDA-Public Use
  Company Number: DK-ASTRAZENECA-2011SE55629

PATIENT
  Age: 87 Year
  Sex: Female
  Weight: 50 kg

DRUGS (6)
  1. METOPROLOL SUCCINATE [Suspect]
     Indication: CARDIAC FAILURE
     Route: 048
     Dates: start: 20110824
  2. SPIRONOLACTONE [Suspect]
     Indication: CARDIAC FAILURE
     Route: 048
     Dates: start: 20110903
  3. DIGOXIN [Suspect]
     Route: 048
     Dates: start: 20110824
  4. CORDAN [Concomitant]
     Indication: ATRIAL FIBRILLATION
     Dates: start: 20110827
  5. PRADAXA [Suspect]
     Indication: CEREBROVASCULAR ACCIDENT PROPHYLAXIS
     Route: 048
     Dates: start: 20110825, end: 20110905
  6. FUROSEMIDE [Suspect]
     Indication: CARDIAC FAILURE
     Route: 048
     Dates: start: 20110824

REACTIONS (1)
  - MELAENA [None]
